FAERS Safety Report 5404514-7 (Version None)
Quarter: 2007Q3

REPORT INFORMATION
  Report Type: 
  Country: None (occurrence: None)
  Receive Date: 20070802
  Receipt Date: 20070730
  Transmission Date: 20080115
  Serious: Yes (Hospitalization)
  Sender: FDA-Public Use
  Company Number: US-SHR-US-2007-028264

PATIENT
  Age: 25 Year
  Sex: Female
  Weight: 50 kg

DRUGS (1)
  1. MIRENA [Suspect]
     Indication: CONTRACEPTION
     Dosage: 20 A?G/DAY, CONT
     Route: 015
     Dates: start: 20070101

REACTIONS (8)
  - ACNE [None]
  - BACK PAIN [None]
  - BREAST TENDERNESS [None]
  - CYSTITIS [None]
  - FEELING HOT [None]
  - HEADACHE [None]
  - PROCEDURAL PAIN [None]
  - PRURITUS [None]
